FAERS Safety Report 5982257-9 (Version None)
Quarter: 2008Q4

REPORT INFORMATION
  Report Type: 
  Country: None (occurrence: None)
  Receive Date: 20081208
  Receipt Date: 20081203
  Transmission Date: 20090506
  Serious: Yes (Other)
  Sender: FDA-Public Use
  Company Number: A0750494A

PATIENT
  Age: 34 Year
  Sex: Female

DRUGS (6)
  1. LAMICTAL [Suspect]
     Indication: BIPOLAR DISORDER
     Dosage: 150MG PER DAY
     Route: 048
     Dates: start: 20080624, end: 20081007
  2. YAZ [Concomitant]
  3. ADDERALL 10 [Concomitant]
  4. CYMBALTA [Concomitant]
  5. PROZAC [Concomitant]
  6. DARVOCET [Concomitant]

REACTIONS (7)
  - ARTHRALGIA [None]
  - BURNING SENSATION [None]
  - CENTRAL NERVOUS SYSTEM LESION [None]
  - DIZZINESS [None]
  - FATIGUE [None]
  - MULTIPLE SCLEROSIS [None]
  - TEARFULNESS [None]
